FAERS Safety Report 6251063-2 (Version None)
Quarter: 2009Q2

REPORT INFORMATION
  Report Type: 
  Country: None (occurrence: None)
  Receive Date: 20090630
  Receipt Date: 20090416
  Transmission Date: 20091009
  Serious: No
  Sender: FDA-Public Use
  Company Number: US-ABBOTT-08P-163-0495049-00

PATIENT
  Sex: Male

DRUGS (13)
  1. ZEMPLAR [Suspect]
     Indication: HYPERPARATHYROIDISM
     Dates: start: 20051001
  2. TOPROL-XL [Concomitant]
     Indication: DRUG USE FOR UNKNOWN INDICATION
  3. ALTACE [Concomitant]
     Indication: DRUG USE FOR UNKNOWN INDICATION
  4. LUNESTA [Concomitant]
     Indication: DRUG USE FOR UNKNOWN INDICATION
  5. LIPITOR [Concomitant]
     Indication: DRUG USE FOR UNKNOWN INDICATION
  6. PROTONIX [Concomitant]
     Indication: DRUG USE FOR UNKNOWN INDICATION
  7. ZETIA [Concomitant]
     Indication: DRUG USE FOR UNKNOWN INDICATION
  8. DEMADEX [Concomitant]
     Indication: DRUG USE FOR UNKNOWN INDICATION
  9. COUMADIN [Concomitant]
     Indication: DRUG USE FOR UNKNOWN INDICATION
  10. ZOLOFT [Concomitant]
     Indication: DRUG USE FOR UNKNOWN INDICATION
  11. TRAMADOL HCL [Concomitant]
     Indication: DRUG USE FOR UNKNOWN INDICATION
  12. DARVOCET [Concomitant]
     Indication: DRUG USE FOR UNKNOWN INDICATION
  13. VICODIN [Concomitant]
     Indication: DRUG USE FOR UNKNOWN INDICATION

REACTIONS (4)
  - ASTHENIA [None]
  - BONE PAIN [None]
  - DRY MOUTH [None]
  - MYALGIA [None]
